FAERS Safety Report 9385250 (Version 2)
Quarter: 2013Q3

REPORT INFORMATION
  Report Type: Spontaneous
  Country: FR (occurrence: FR)
  Receive Date: 20130705
  Receipt Date: 20130927
  Transmission Date: 20140515
  Serious: Yes (Death)
  Sender: FDA-Public Use
  Company Number: FR-ASTRAZENECA-2013SE50564

PATIENT
  Age: 28251 Day
  Sex: Male

DRUGS (12)
  1. BUDESONIDE [Suspect]
     Route: 055
     Dates: start: 20130609, end: 20130624
  2. INEXIUM [Suspect]
     Route: 048
     Dates: start: 20130612, end: 20130624
  3. HYDROCORTISONE [Suspect]
     Route: 048
     Dates: start: 20130612, end: 20130624
  4. HEPARINE CHOAY [Suspect]
     Indication: ATRIAL TACHYCARDIA
     Dates: start: 20130614, end: 20130624
  5. CONTRAMAL [Suspect]
     Dates: start: 20130619, end: 20130624
  6. COUMADINE [Suspect]
     Indication: ATRIAL TACHYCARDIA
     Route: 048
     Dates: start: 20130615, end: 20130624
  7. MIMPARA [Suspect]
     Dates: start: 20130615, end: 20130624
  8. MONO TILDIEM [Suspect]
     Indication: ATRIAL TACHYCARDIA
     Dosage: 200 MG SR EVERY DAY
     Dates: start: 20130611, end: 20130624
  9. RENAGEL [Suspect]
     Dates: start: 20130613, end: 20130624
  10. TAZOCILLINE [Concomitant]
     Indication: ANTIBIOTIC THERAPY
  11. TAVANIC [Concomitant]
     Indication: ANTIBIOTIC THERAPY
  12. CORTICOTHERAPY [Concomitant]
     Route: 042
     Dates: start: 201306, end: 201306

REACTIONS (2)
  - Hepatitis fulminant [Fatal]
  - Multi-organ failure [Fatal]
